FAERS Safety Report 12369687 (Version 1)
Quarter: 2016Q2

REPORT INFORMATION
  Report Type: Spontaneous
  Country: US (occurrence: US)
  Receive Date: 20160516
  Receipt Date: 20160516
  Transmission Date: 20160815
  Serious: No
  Sender: FDA-Public Use
  Company Number: US-AUROBINDO-AUR-APL-2015-04128

PATIENT
  Age: 64 Year
  Sex: Male
  Weight: 106.58 kg

DRUGS (2)
  1. QUETIAPINE FUMARATE TABLETS 400MG [Suspect]
     Active Substance: QUETIAPINE FUMARATE
     Dosage: 200 MG, TWO TIMES A DAY
     Route: 048
     Dates: start: 201501
  2. QUETIAPINE FUMARATE TABLETS 400MG [Suspect]
     Active Substance: QUETIAPINE FUMARATE
     Indication: SCHIZOAFFECTIVE DISORDER
     Dosage: 400 MG, ONCE A DAY
     Route: 048
     Dates: start: 201501

REACTIONS (3)
  - Drug ineffective [Not Recovered/Not Resolved]
  - Feeling abnormal [Not Recovered/Not Resolved]
  - Paranoia [Not Recovered/Not Resolved]

NARRATIVE: CASE EVENT DATE: 201501
